FAERS Safety Report 20353392 (Version 6)
Quarter: 2025Q3

REPORT INFORMATION
  Report Type: Spontaneous
  Country: US (occurrence: US)
  Receive Date: 20220119
  Receipt Date: 20250915
  Transmission Date: 20251020
  Serious: No
  Sender: BIOMARIN
  Company Number: US-BIOMARINAP-US-2022-140782

PATIENT
  Age: 14 Year
  Sex: Female
  Weight: 53.52 kg

DRUGS (7)
  1. ALDURAZYME [Suspect]
     Active Substance: LARONIDASE
     Indication: Mucopolysaccharidosis I
     Dosage: 20.3 MG, QW
     Dates: start: 20210729
  2. ALDURAZYME [Suspect]
     Active Substance: LARONIDASE
     Dosage: 29 MG, QW
     Dates: start: 202107
  3. ALDURAZYME [Suspect]
     Active Substance: LARONIDASE
     Dosage: 31.9 MG, QW
  4. METHYLPREDNISOLONE HEMISUCCINATE [Concomitant]
     Active Substance: METHYLPREDNISOLONE HEMISUCCINATE
     Indication: Product used for unknown indication
  5. DIPHENHYDRAMINE [Concomitant]
     Active Substance: DIPHENHYDRAMINE
     Indication: Product used for unknown indication
  6. EPINEPHRINE [Concomitant]
     Active Substance: EPINEPHRINE
     Indication: Product used for unknown indication
  7. BACTERIOSTATIC WATER [Concomitant]
     Active Substance: WATER
     Indication: Product used for unknown indication

REACTIONS (2)
  - Weight decreased [Recovering/Resolving]
  - Intentional dose omission [Unknown]

NARRATIVE: CASE EVENT DATE: 20250709
